FAERS Safety Report 8461815-6 (Version None)
Quarter: 2012Q2

REPORT INFORMATION
  Report Type: 
  Country: None (occurrence: None)
  Receive Date: 20120625
  Receipt Date: 20120614
  Transmission Date: 20120825
  Serious: Yes (Hospitalization, Other)
  Sender: FDA-Public Use
  Company Number: CH-BRISTOL-MYERS SQUIBB COMPANY-16686545

PATIENT
  Age: 67 Year
  Sex: Male

DRUGS (12)
  1. METOPROLOL TARTRATE [Concomitant]
     Route: 048
  2. ASPIRIN [Concomitant]
     Route: 048
  3. PRAVASTATIN [Suspect]
     Route: 048
     Dates: start: 20120504, end: 20120508
  4. GLUCOPHAGE [Concomitant]
     Route: 048
  5. CORDARONE [Suspect]
     Indication: ATRIAL FLUTTER
     Route: 048
     Dates: start: 20120506, end: 20120507
  6. ENALAPRIL MALEATE [Suspect]
     Route: 048
     Dates: start: 20120503, end: 20120507
  7. NOVALGIN [Suspect]
     Route: 048
     Dates: start: 20120502, end: 20120507
  8. TORSEMIDE [Concomitant]
     Route: 048
     Dates: end: 20120501
  9. ALDACTONE [Suspect]
     Route: 048
     Dates: end: 20120507
  10. ACETAMINOPHEN [Suspect]
     Indication: ANALGESIC THERAPY
     Route: 048
     Dates: start: 20120502, end: 20120508
  11. CORDARONE [Suspect]
     Indication: ATRIAL FIBRILLATION
     Route: 048
     Dates: start: 20120506, end: 20120507
  12. NEXIUM [Suspect]
     Route: 048
     Dates: start: 20120505, end: 20120508

REACTIONS (4)
  - MIXED LIVER INJURY [None]
  - ATRIAL FIBRILLATION [None]
  - BLOOD POTASSIUM INCREASED [None]
  - BLOOD CREATININE INCREASED [None]
